FAERS Safety Report 7278932-9 (Version None)
Quarter: 2011Q1

REPORT INFORMATION
  Report Type: 
  Country: None (occurrence: None)
  Receive Date: 20110207
  Receipt Date: 20110125
  Transmission Date: 20110831
  Serious: Yes (Other)
  Sender: FDA-Public Use
  Company Number: PHFR2011GB00956

PATIENT
  Sex: Male
  Weight: 63 kg

DRUGS (7)
  1. IMATINIB [Suspect]
     Indication: PULMONARY ARTERIAL HYPERTENSION
     Dosage: 200 MG, QD
     Route: 048
     Dates: start: 20101209
  2. AMBRISENTAN [Concomitant]
     Indication: PULMONARY HYPERTENSION
     Dosage: 5 MG/DAY
     Route: 048
     Dates: start: 20101211
  3. BUMETANIDE [Concomitant]
     Indication: OEDEMA PERIPHERAL
     Dosage: 1 MG, QD
     Route: 048
  4. IMATINIB [Suspect]
     Dosage: 200 MG, QD
     Route: 048
     Dates: start: 20110119, end: 20110124
  5. SILDENAFIL [Concomitant]
     Indication: PULMONARY HYPERTENSION
     Dosage: 60 MG/DAY
     Route: 048
     Dates: start: 20100416
  6. IMATINIB [Suspect]
     Dosage: 400 MG, QD
     Route: 048
     Dates: start: 20110107
  7. SPIRONOLACTONE [Concomitant]
     Indication: OEDEMA PERIPHERAL
     Dosage: 25 MG, QD
     Route: 048

REACTIONS (7)
  - PRODUCTIVE COUGH [None]
  - NAUSEA [None]
  - VOMITING [None]
  - SPUTUM DISCOLOURED [None]
  - LOWER RESPIRATORY TRACT INFECTION [None]
  - FAECES DISCOLOURED [None]
  - WEIGHT DECREASED [None]
